FAERS Safety Report 5823975-2 (Version None)
Quarter: 2008Q3

REPORT INFORMATION
  Report Type: 
  Country: None (occurrence: None)
  Receive Date: 20080728
  Receipt Date: 20080716
  Transmission Date: 20090109
  Serious: Yes (Disabling)
  Sender: FDA-Public Use
  Company Number: JP-ELI_LILLY_AND_COMPANY-JP200807004167

PATIENT
  Age: 66 Year
  Sex: Female

DRUGS (2)
  1. ZYPREXA [Suspect]
     Route: 048
  2. CARBAMAZEPINE [Concomitant]
     Indication: ABNORMAL BEHAVIOUR

REACTIONS (2)
  - ABNORMAL BEHAVIOUR [None]
  - PERSONALITY CHANGE DUE TO A GENERAL MEDICAL CONDITION [None]
